FAERS Safety Report 9875042 (Version 1)
Quarter: 2014Q1

REPORT INFORMATION
  Report Type: Spontaneous
  Country: US (occurrence: None)
  Receive Date: 20140204
  Receipt Date: 20140204
  Transmission Date: 20141002
  Serious: Yes (Death)
  Sender: FDA-Public Use
  Company Number: ABR_01450_2014

PATIENT
  Age: 59 Year
  Sex: Female

DRUGS (3)
  1. AMPHETAMINE [Suspect]
     Indication: PRODUCT USED FOR UNKNOWN INDICATION
     Dosage: DF UNKNOWN UNTIL NOT CONTINUING
  2. OPIOIDS [Suspect]
     Indication: PRODUCT USED FOR UNKNOWN INDICATION
     Dosage: DR ORAL UNKNOWN UNTIL NOT CONTINUING?
     Route: 048
  3. ACETAMINOPHEN [Suspect]
     Indication: PRODUCT USED FOR UNKNOWN INDICATION
     Dosage: DF ORAL UNKNOWN UNTIL NOT CONTINUING
     Route: 048

REACTIONS (4)
  - Respiratory arrest [None]
  - Cardiac arrest [None]
  - Exposure via ingestion [None]
  - Completed suicide [None]
